FAERS Safety Report 10201112 (Version 1)
Quarter: 2014Q2

REPORT INFORMATION
  Report Type: Spontaneous
  Country: US (occurrence: US)
  Receive Date: 20140528
  Receipt Date: 20140528
  Transmission Date: 20141212
  Serious: No
  Sender: FDA-Public Use
  Company Number: US-B.I. PHARMACEUTICALS,INC./RIDGEFIELD-2014-BI-21951BP

PATIENT
  Age: 79 Year
  Sex: Female

DRUGS (14)
  1. COMBIVENT [Suspect]
     Indication: BRONCHITIS CHRONIC
     Dosage: STRENGTH: 18 MCG / 103 MCG; DAILY DOSE: 144 MCG/ 1024 MCG
     Route: 055
     Dates: start: 2009
  2. PROTONIX [Concomitant]
     Route: 048
  3. IPRATROPIUM [Concomitant]
     Route: 055
  4. LISINOPRIL [Concomitant]
     Route: 048
  5. LOPID [Concomitant]
     Route: 048
  6. CALCIUM [Concomitant]
     Route: 048
  7. EYE CAPS [Concomitant]
     Route: 048
  8. VOLTAREN [Concomitant]
     Route: 048
  9. B COMPLEX [Concomitant]
     Route: 048
  10. VITAMIN D [Concomitant]
     Route: 048
  11. SINGULAIR [Concomitant]
     Route: 048
  12. INTEGRA [Concomitant]
     Route: 048
  13. ASPIRIN [Concomitant]
     Dosage: 81 MG
     Route: 048
  14. ADVAIR [Concomitant]
     Route: 055

REACTIONS (3)
  - Sneezing [Recovered/Resolved]
  - Dyspnoea [Recovered/Resolved]
  - Dyspnoea [Recovered/Resolved]
